FAERS Safety Report 12080187 (Version 1)
Quarter: 2016Q1

REPORT INFORMATION
  Report Type: Spontaneous
  Country: US (occurrence: None)
  Receive Date: 20160212
  Receipt Date: 20160212
  Transmission Date: 20160526
  Serious: No
  Sender: FDA-Public Use
  Company Number: None

PATIENT
  Age: 45 Year
  Sex: Male

DRUGS (3)
  1. FLONASE [Concomitant]
     Active Substance: FLUTICASONE PROPIONATE
  2. ENBREL [Suspect]
     Active Substance: ETANERCEPT
     Indication: ANKYLOSING SPONDYLITIS
     Dosage: 0.5ML (25MG) QWEEK FOR 28 DAYS SUBCUTANEOUS INJECTION
     Route: 058
     Dates: start: 20150123
  3. RESVERATROL [Concomitant]
     Active Substance: RESVERATROL

REACTIONS (2)
  - Headache [None]
  - Heart rate abnormal [None]

NARRATIVE: CASE EVENT DATE: 20160209
